FAERS Safety Report 9722877 (Version 1)
Quarter: 2013Q4

REPORT INFORMATION
  Report Type: Spontaneous
  Country: US (occurrence: None)
  Receive Date: 20131127
  Receipt Date: 20131127
  Transmission Date: 20140711
  Serious: No
  Sender: FDA-Public Use
  Company Number: None

PATIENT
  Age: 25 Year
  Sex: Female
  Weight: 61.24 kg

DRUGS (1)
  1. MINASTRIN 24 FE [Suspect]
     Indication: CONTRACEPTION
     Dosage: 1 PILL ONCE DAILY TAKEN BY MOUTH
     Dates: start: 20130901, end: 20131125

REACTIONS (9)
  - Mood swings [None]
  - Depression [None]
  - Headache [None]
  - Muscle spasms [None]
  - Acne [None]
  - Dyspepsia [None]
  - Gastrooesophageal reflux disease [None]
  - Fungal infection [None]
  - Feeling abnormal [None]
